FAERS Safety Report 7453408-4 (Version None)
Quarter: 2011Q2

REPORT INFORMATION
  Report Type: 
  Country: None (occurrence: None)
  Receive Date: 20110502
  Receipt Date: 20110211
  Transmission Date: 20111010
  Serious: No
  Sender: FDA-Public Use
  Company Number: US-ASTRAZENECA-2011SE08429

PATIENT
  Age: 87 Year
  Sex: Female

DRUGS (2)
  1. NEXIUM [Suspect]
     Dates: end: 20110204
  2. NEXIUM [Suspect]
     Indication: GASTROOESOPHAGEAL REFLUX DISEASE
     Dates: start: 20110125

REACTIONS (7)
  - ARTHRITIS [None]
  - MUSCULOSKELETAL PAIN [None]
  - ADVERSE EVENT [None]
  - FATIGUE [None]
  - ARTHRALGIA [None]
  - ABDOMINAL DISTENSION [None]
  - MALAISE [None]
